FAERS Safety Report 5813490-4 (Version None)
Quarter: 2008Q3

REPORT INFORMATION
  Report Type: 
  Country: None (occurrence: None)
  Receive Date: 20080717
  Receipt Date: 20080710
  Transmission Date: 20090109
  Serious: No
  Sender: FDA-Public Use
  Company Number: AU-EISAI MEDIAL RESEARCH-E3810-02002-SPO-AU

PATIENT
  Sex: Female
  Weight: 56 kg

DRUGS (5)
  1. RABEPRAZOLE SODIUM [Suspect]
     Route: 048
     Dates: start: 20070526, end: 20070530
  2. PREXIGE [Suspect]
     Indication: FIBROMYALGIA
     Route: 048
     Dates: start: 20070526, end: 20070530
  3. PREXIGE [Suspect]
  4. PREXIGE [Suspect]
     Indication: MYALGIA
  5. ACETAMINOPHEN [Concomitant]

REACTIONS (3)
  - ABDOMINAL DISTENSION [None]
  - FAECES DISCOLOURED [None]
  - HEPATIC FUNCTION ABNORMAL [None]
